FAERS Safety Report 8593436 (Version 2)
Quarter: 2013Q2

REPORT INFORMATION
  Report Type: Spontaneous
  Country: US (occurrence: US)
  Receive Date: 20120604
  Receipt Date: 20130617
  Transmission Date: 20140414
  Serious: Yes (Hospitalization, Disabling)
  Sender: FDA-Public Use
  Company Number: US-ASTRAZENECA-2012SE34938

PATIENT
  Age: 18906 Day
  Sex: Female
  Weight: 118.8 kg

DRUGS (14)
  1. NEXIUM [Suspect]
     Indication: GASTROOESOPHAGEAL REFLUX DISEASE
     Route: 048
     Dates: start: 20060108, end: 20101130
  2. NEXIUM [Suspect]
     Indication: HIATUS HERNIA
     Route: 048
     Dates: start: 20060108, end: 20101130
  3. PRILOSEC [Suspect]
     Indication: GASTROOESOPHAGEAL REFLUX DISEASE
     Route: 048
     Dates: start: 20061213
  4. PRILOSEC [Suspect]
     Indication: GASTROOESOPHAGEAL REFLUX DISEASE
     Route: 048
     Dates: start: 20061231, end: 20101130
  5. PEPCID [Concomitant]
  6. CAPTOPRIL [Concomitant]
     Indication: HYPERTENSION
  7. ATENOLOL [Concomitant]
     Indication: HYPERTENSION
  8. POTASSIUM [Concomitant]
     Indication: BLOOD POTASSIUM DECREASED
  9. SIMVASTIN [Concomitant]
     Indication: BLOOD CHOLESTEROL ABNORMAL
  10. PREMPHASE [Concomitant]
     Indication: HORMONE REPLACEMENT THERAPY
     Dosage: 0725/5 MG
     Dates: start: 200102
  11. FEMHRT [Concomitant]
     Indication: HORMONE REPLACEMENT THERAPY
     Dates: start: 200105
  12. ESTROSTEP FE 28 [Concomitant]
     Indication: HORMONE REPLACEMENT THERAPY
     Dates: start: 200109, end: 20020219
  13. PREMARIN [Concomitant]
     Indication: HORMONE REPLACEMENT THERAPY
     Dosage: 0.625 MG
  14. METFORMIN [Concomitant]

REACTIONS (12)
  - Arthropathy [Unknown]
  - Breast disorder [Unknown]
  - Intervertebral disc protrusion [Unknown]
  - Osteoporosis [Unknown]
  - Foot fracture [Unknown]
  - VIIth nerve paralysis [Unknown]
  - Fall [Unknown]
  - Arthritis [Unknown]
  - Diabetes mellitus [Unknown]
  - Scoliosis [Unknown]
  - Vitamin D deficiency [Unknown]
  - Ligament sprain [Unknown]
